FAERS Safety Report 10408804 (Version 6)
Quarter: 2015Q2

REPORT INFORMATION
  Report Type: Spontaneous
  Country: US (occurrence: US)
  Receive Date: 20140826
  Receipt Date: 20150525
  Transmission Date: 20150821
  Serious: Yes (Hospitalization)
  Sender: FDA-Public Use
  Company Number: US-JNJFOC-20140719507

PATIENT
  Age: 59 Year
  Sex: Male
  Weight: 101.61 kg

DRUGS (3)
  1. REMICADE [Suspect]
     Active Substance: INFLIXIMAB
     Indication: CROHN^S DISEASE
     Route: 042
     Dates: start: 20140420, end: 201404
  2. PREDNISONE. [Concomitant]
     Active Substance: PREDNISONE
     Indication: INFLAMMATION
     Route: 065
  3. HYDROCODONE [Concomitant]
     Active Substance: HYDROCODONE
     Indication: PAIN
     Route: 065

REACTIONS (8)
  - Vasculitis [Recovering/Resolving]
  - Mobility decreased [Not Recovered/Not Resolved]
  - Peripheral swelling [Unknown]
  - Urticaria [Recovering/Resolving]
  - Tinnitus [Unknown]
  - Arthralgia [Recovering/Resolving]
  - Crohn^s disease [Recovering/Resolving]
  - Arthropathy [Not Recovered/Not Resolved]

NARRATIVE: CASE EVENT DATE: 2014
